FAERS Safety Report 10860920 (Version 1)
Quarter: 2015Q1

REPORT INFORMATION
  Report Type: Spontaneous
  Country: US (occurrence: US)
  Receive Date: 20150224
  Receipt Date: 20150224
  Transmission Date: 20150721
  Serious: Yes (Hospitalization, Other)
  Sender: FDA-Public Use
  Company Number: US-DRREDDYS-USA/USA/15/0046192

PATIENT
  Age: 73 Year
  Sex: Female

DRUGS (3)
  1. TACROLIMUS. [Suspect]
     Active Substance: TACROLIMUS
     Indication: NEPHROSCLEROSIS
     Route: 065
  2. AZATHIOPRINE. [Suspect]
     Active Substance: AZATHIOPRINE
     Indication: NEPHROSCLEROSIS
     Route: 065
  3. PREDNISONE. [Suspect]
     Active Substance: PREDNISONE
     Indication: NEPHROSCLEROSIS
     Route: 065

REACTIONS (5)
  - Cerebral ischaemia [Unknown]
  - Multiple-drug resistance [Recovering/Resolving]
  - Pseudomonas infection [Unknown]
  - Urinary tract infection [Unknown]
  - Clostridium difficile infection [Recovered/Resolved]
